FAERS Safety Report 9780138 (Version 2)
Quarter: 2014Q1

REPORT INFORMATION
  Report Type: Report from Study
  Country: US (occurrence: US)
  Receive Date: 20131223
  Receipt Date: 20140224
  Transmission Date: 20141002
  Serious: Yes (Hospitalization, Other)
  Sender: FDA-Public Use
  Company Number: US-ABBVIE-13P-163-1180037-00

PATIENT
  Sex: Female
  Weight: 63.11 kg

DRUGS (13)
  1. HUMIRA [Suspect]
     Indication: PSORIATIC ARTHROPATHY
  2. HUMIRA [Suspect]
     Dates: end: 2011
  3. FOLIC ACID [Concomitant]
     Indication: PRODUCT USED FOR UNKNOWN INDICATION
  4. OMEPRAZOLE [Concomitant]
     Indication: PRODUCT USED FOR UNKNOWN INDICATION
  5. GABAPENTIN [Concomitant]
     Indication: PRODUCT USED FOR UNKNOWN INDICATION
  6. LISINOPRIL [Concomitant]
     Indication: PRODUCT USED FOR UNKNOWN INDICATION
  7. WARFIN [Concomitant]
     Indication: THROMBOSIS
  8. UNKNOWN MUSCLE RELAXER [Concomitant]
     Indication: PRODUCT USED FOR UNKNOWN INDICATION
  9. CLOPIDOGREL [Concomitant]
     Indication: PRODUCT USED FOR UNKNOWN INDICATION
  10. OXYCODONE [Concomitant]
     Indication: PRODUCT USED FOR UNKNOWN INDICATION
  11. HYDROCHLOROQUINE [Concomitant]
     Indication: PRODUCT USED FOR UNKNOWN INDICATION
  12. ATORVASTIN [Concomitant]
     Indication: PRODUCT USED FOR UNKNOWN INDICATION
  13. ZOLPIDEM [Concomitant]
     Indication: PRODUCT USED FOR UNKNOWN INDICATION

REACTIONS (23)
  - Abdominal adhesions [Recovering/Resolving]
  - Vomiting [Recovered/Resolved]
  - Intestinal obstruction [Recovering/Resolving]
  - Arthralgia [Not Recovered/Not Resolved]
  - Gastrointestinal disorder [Unknown]
  - Abdominal adhesions [Recovering/Resolving]
  - Gastrointestinal anastomotic leak [Recovering/Resolving]
  - Medical induction of coma [Recovered/Resolved]
  - Intestinal fistula [Recovering/Resolving]
  - Abdominal adhesions [Recovering/Resolving]
  - Gastrointestinal anastomotic leak [Recovering/Resolving]
  - Sepsis [Recovered/Resolved]
  - Medical induction of coma [Recovered/Resolved]
  - Thrombosis [Recovered/Resolved]
  - Myocardial infarction [Unknown]
  - Rotator cuff syndrome [Unknown]
  - Exostosis [Unknown]
  - Blood pressure increased [Recovering/Resolving]
  - Intervertebral disc degeneration [Unknown]
  - Family stress [Not Recovered/Not Resolved]
  - Drug ineffective [Unknown]
  - Intervertebral disc protrusion [Unknown]
  - Infection [Recovered/Resolved]
